FAERS Safety Report 4873121-7 (Version None)
Quarter: 2005Q4

REPORT INFORMATION
  Report Type: 
  Country: None (occurrence: None)
  Receive Date: 20051201
  Receipt Date: 20050817
  Transmission Date: 20060501
  Serious: No
  Sender: FDA-Public Use
  Company Number: 2005PV001257

PATIENT
  Age: 48 Year
  Sex: Male

DRUGS (2)
  1. BYETTA [Suspect]
     Indication: DIABETES MELLITUS NON-INSULIN-DEPENDENT
     Dosage: SEE IMAGE
     Route: 058
     Dates: end: 20050101
  2. METFORMIN [Concomitant]

REACTIONS (3)
  - BLOOD GLUCOSE INCREASED [None]
  - NAUSEA [None]
  - WEIGHT INCREASED [None]
